FAERS Safety Report 18124947 (Version 1)
Quarter: 2020Q3

REPORT INFORMATION
  Report Type: Report from Study
  Country: CL (occurrence: CL)
  Receive Date: 20200807
  Receipt Date: 20200807
  Transmission Date: 20201103
  Serious: Yes (Other)
  Sender: FDA-Public Use
  Company Number: CL-SA-2020SA168409

PATIENT

DRUGS (12)
  1. METHYLPREDNISOLONE. [Concomitant]
     Active Substance: METHYLPREDNISOLONE
     Indication: SALVAGE THERAPY
     Dosage: 40 MG, Q12H
     Route: 042
     Dates: start: 20200620, end: 20200626
  2. ENOXAPARIN [Concomitant]
     Active Substance: ENOXAPARIN
     Indication: PRE-EXISTING DISEASE
     Dosage: 80 MG, QD
     Route: 058
     Dates: start: 20200619, end: 20200622
  3. MIDAZOLAM. [Concomitant]
     Active Substance: MIDAZOLAM
     Indication: PROPHYLAXIS
     Dosage: 200 MG, CONT
     Route: 041
     Dates: start: 20200620
  4. LEVOTHYROXIN [Concomitant]
     Active Substance: LEVOTHYROXINE
     Indication: HYPOTHYROIDISM
     Dosage: 100 MG, QD
     Route: 048
     Dates: start: 2015
  5. AZITHROMYCIN ANHYDROUS. [Concomitant]
     Active Substance: AZITHROMYCIN ANHYDROUS
     Indication: PRE-EXISTING DISEASE
     Dosage: 500 MG, QD
     Route: 050
     Dates: start: 20200619, end: 20200626
  6. ACETAMINOPHEN. [Concomitant]
     Active Substance: ACETAMINOPHEN
     Indication: PRE-EXISTING DISEASE
     Dosage: 1 G, PRN
     Route: 048
     Dates: start: 20200618, end: 20200620
  7. ENOXAPARIN [Concomitant]
     Active Substance: ENOXAPARIN
     Dosage: 80 MG, Q12H
     Route: 058
     Dates: start: 20200623
  8. QUETIAPINE. [Concomitant]
     Active Substance: QUETIAPINE
     Indication: PROPHYLAXIS
     Dosage: 50 MG, Q8H
     Route: 050
     Dates: start: 20200625
  9. SARILUMAB [Suspect]
     Active Substance: SARILUMAB
     Dosage: INTENDED DOSE:1 BAG, INFUSION RATE:100 ML/H, 1X
     Route: 042
     Dates: start: 20200621, end: 20200621
  10. IPRATROPIUM BROMIDE. [Concomitant]
     Active Substance: IPRATROPIUM BROMIDE
     Indication: PRE-EXISTING DISEASE
     Dosage: 2 INHALATIONS, Q4H
     Route: 055
     Dates: start: 20200619
  11. CEFTRIAXONE. [Concomitant]
     Active Substance: CEFTRIAXONE
     Indication: PRE-EXISTING DISEASE
     Dosage: 2 G, QD
     Route: 042
     Dates: start: 20200619, end: 20200628
  12. SARILUMAB [Suspect]
     Active Substance: SARILUMAB
     Indication: COVID-19
     Dosage: INTENDED DOSE:1 BAG, INFUSION RATE:100 ML/H, 1X
     Route: 042
     Dates: start: 20200620, end: 20200620

REACTIONS (1)
  - Alanine aminotransferase increased [Recovered/Resolved]

NARRATIVE: CASE EVENT DATE: 20200627
